FAERS Safety Report 6662834-2 (Version None)
Quarter: 2010Q2

REPORT INFORMATION
  Report Type: 
  Country: None (occurrence: None)
  Receive Date: 20100401
  Receipt Date: 20100325
  Transmission Date: 20101027
  Serious: No
  Sender: FDA-Public Use
  Company Number: 2008BI025641

PATIENT
  Age: 48 Year
  Sex: Male

DRUGS (1)
  1. TYSABRI [Suspect]
     Indication: CROHN'S DISEASE
     Route: 042
     Dates: start: 20080815, end: 20081110

REACTIONS (4)
  - ASTHENIA [None]
  - DIZZINESS [None]
  - INSOMNIA [None]
  - SENSORY DISTURBANCE [None]
